FAERS Safety Report 17543302 (Version 5)
Quarter: 2020Q2

REPORT INFORMATION
  Report Type: Report from Study
  Country: None (occurrence: US)
  Receive Date: 20200316
  Receipt Date: 20200529
  Transmission Date: 20200713
  Serious: Yes (Hospitalization)
  Sender: FDA-Public Use
  Company Number: US-ABBVIE-20K-163-3320077-00

PATIENT
  Sex: Female
  Weight: 79 kg

DRUGS (4)
  1. HUMIRA [Suspect]
     Active Substance: ADALIMUMAB
     Indication: CROHN^S DISEASE
     Route: 058
     Dates: start: 2020
  2. HUMIRA [Suspect]
     Active Substance: ADALIMUMAB
     Dosage: DAY 15
     Route: 058
     Dates: start: 20200307, end: 20200307
  3. HUMIRA [Suspect]
     Active Substance: ADALIMUMAB
     Route: 058
     Dates: start: 202003
  4. HUMIRA [Suspect]
     Active Substance: ADALIMUMAB
     Indication: CROHN^S DISEASE
     Dosage: DAY 1
     Route: 058
     Dates: start: 20200221, end: 20200221

REACTIONS (16)
  - Abnormal weight gain [Not Recovered/Not Resolved]
  - Hypotension [Recovering/Resolving]
  - Diarrhoea [Unknown]
  - Drug ineffective [Unknown]
  - Small intestinal obstruction [Recovering/Resolving]
  - Fatigue [Recovering/Resolving]
  - Insomnia [Unknown]
  - Constipation [Unknown]
  - Wrong technique in product usage process [Unknown]
  - Arthralgia [Not Recovered/Not Resolved]
  - Decreased appetite [Unknown]
  - Depressed mood [Unknown]
  - Insomnia [Not Recovered/Not Resolved]
  - Abdominal pain [Unknown]
  - Syncope [Recovering/Resolving]
  - Urinary tract infection [Recovered/Resolved]

NARRATIVE: CASE EVENT DATE: 2020
